FAERS Safety Report 10446033 (Version 1)
Quarter: 2014Q3

REPORT INFORMATION
  Report Type: Spontaneous
  Country: US (occurrence: US)
  Receive Date: 20140910
  Receipt Date: 20140910
  Transmission Date: 20150326
  Serious: Yes (Other)
  Sender: FDA-Public Use
  Company Number: US-BAUSCH-BL-2014-004451

PATIENT
  Sex: Male

DRUGS (4)
  1. PROLENSA [Suspect]
     Active Substance: BROMFENAC SODIUM
     Indication: EYE INFLAMMATION
     Route: 047
     Dates: start: 201307
  2. PROLENSA [Suspect]
     Active Substance: BROMFENAC SODIUM
     Route: 047
     Dates: start: 201311
  3. COSOPT [Concomitant]
     Active Substance: DORZOLAMIDE HYDROCHLORIDE\TIMOLOL MALEATE
     Indication: GLAUCOMA
  4. XALATAN [Concomitant]
     Active Substance: LATANOPROST
     Indication: GLAUCOMA

REACTIONS (4)
  - Visual acuity reduced [Recovered/Resolved]
  - Intraocular pressure increased [Recovered/Resolved]
  - Eye infection [Recovered/Resolved]
  - Ocular vasculitis [Recovered/Resolved]

NARRATIVE: CASE EVENT DATE: 201311
